FAERS Safety Report 6833897-6 (Version None)
Quarter: 2010Q3

REPORT INFORMATION
  Report Type: 
  Country: None (occurrence: None)
  Receive Date: 20100712
  Receipt Date: 20070403
  Transmission Date: 20110219
  Serious: No
  Sender: FDA-Public Use
  Company Number: US-PFIZER INC-2007028347

PATIENT
  Age: 58 Year
  Sex: Female
  Weight: 90.72 kg

DRUGS (4)
  1. CHANTIX [Suspect]
     Indication: SMOKING CESSATION THERAPY
     Dates: start: 20070101
  2. ANTIHYPERTENSIVES [Concomitant]
     Indication: HYPERTENSION
  3. PREMARIN [Concomitant]
  4. DIAZEPAM [Concomitant]

REACTIONS (4)
  - ARTHRITIS [None]
  - HYPOAESTHESIA [None]
  - IRRITABILITY [None]
  - SLEEP DISORDER [None]
